FAERS Safety Report 10230984 (Version 1)
Quarter: 2014Q2

REPORT INFORMATION
  Report Type: Spontaneous
  Country: US (occurrence: None)
  Receive Date: 20140610
  Receipt Date: 20140610
  Transmission Date: 20141212
  Serious: Yes (Disabling, Other)
  Sender: FDA-Public Use
  Company Number: None

PATIENT
  Age: 52 Year
  Sex: Female
  Weight: 68.95 kg

DRUGS (1)
  1. MARCAINE [Suspect]
     Indication: TOOTH REPAIR
     Dosage: TWICE, TAKEN UNDER THE TONGUE
     Route: 048
     Dates: start: 20140606, end: 20140606

REACTIONS (4)
  - Tachycardia [None]
  - Nausea [None]
  - Vomiting [None]
  - Vertigo [None]
